FAERS Safety Report 9095216 (Version 3)
Quarter: 2013Q1

REPORT INFORMATION
  Report Type: Spontaneous
  Country: JP (occurrence: JP)
  Receive Date: 20130219
  Receipt Date: 20130325
  Transmission Date: 20140127
  Serious: Yes (Other)
  Sender: FDA-Public Use
  Company Number: JP-009507513-1302JPN007203

PATIENT
  Age: 75 Year
  Sex: Male
  Weight: 55 kg

DRUGS (10)
  1. GLACTIV [Suspect]
     Indication: TYPE 2 DIABETES MELLITUS
     Dosage: 50 MG, QD
     Route: 048
     Dates: start: 20110902, end: 20130108
  2. METGLUCO [Concomitant]
     Indication: DIABETES MELLITUS
     Dosage: 500 MG, TID
  3. SEIBULE [Concomitant]
     Indication: DIABETES MELLITUS
     Dosage: 50 MG, TID
  4. AMARYL [Concomitant]
     Indication: DIABETES MELLITUS
     Dosage: 1 MG, 3 TIMES A DAY
  5. AMARYL [Concomitant]
     Dosage: 1 MG, BID AFTER BREAKFASTAND DINNER
     Dates: start: 20110902
  6. CILNIDIPINE [Concomitant]
  7. TANATRIL [Concomitant]
  8. ATORVASTATIN [Concomitant]
  9. AMARYL [Concomitant]
     Indication: DIABETES MELLITUS
  10. AMARYL [Concomitant]
     Indication: DIABETES MELLITUS

REACTIONS (1)
  - Seronegative arthritis [Recovered/Resolved]
